FAERS Safety Report 12126359 (Version 1)
Quarter: 2016Q1

REPORT INFORMATION
  Report Type: Spontaneous
  Country: US (occurrence: US)
  Receive Date: 20160229
  Receipt Date: 20160229
  Transmission Date: 20160526
  Serious: No
  Sender: FDA-Public Use
  Company Number: US-FRI-1000080846

PATIENT
  Sex: Female

DRUGS (5)
  1. KEPPRA [Concomitant]
     Active Substance: LEVETIRACETAM
     Indication: SEIZURE
     Dosage: 2000 MG
     Route: 048
  2. VIIBRYD [Suspect]
     Active Substance: VILAZODONE HYDROCHLORIDE
     Dosage: 20 MG
     Route: 048
     Dates: start: 20151106
  3. KLONOPIN [Concomitant]
     Active Substance: CLONAZEPAM
     Route: 048
  4. VIIBRYD [Suspect]
     Active Substance: VILAZODONE HYDROCHLORIDE
     Indication: DEPRESSION
     Dosage: 10 MG
     Route: 048
     Dates: start: 20151029, end: 20151105
  5. WHOLE SYSTEM LYMPH MULTIVITAMIN [Concomitant]
     Indication: EAR DISORDER

REACTIONS (1)
  - Drug ineffective [Recovering/Resolving]
